FAERS Safety Report 9032375 (Version 2)
Quarter: 2013Q4

REPORT INFORMATION
  Report Type: Spontaneous
  Country: US (occurrence: US)
  Receive Date: 20130125
  Receipt Date: 20131113
  Transmission Date: 20140711
  Serious: Yes (Other)
  Sender: FDA-Public Use
  Company Number: US-MYLANLABS-2013S1001210

PATIENT
  Age: 33 Year
  Sex: Female

DRUGS (2)
  1. FLUPHENAZINE HYDROCHLORIDE TABLETS, USP [Suspect]
     Indication: PSYCHOTIC DISORDER
     Dates: start: 201207, end: 201207
  2. FLUPHENAZINE HYDROCHLORIDE TABLETS, USP [Suspect]
     Indication: SCHIZOAFFECTIVE DISORDER
     Dates: start: 201207, end: 201207

REACTIONS (4)
  - Neuroleptic malignant syndrome [Recovered/Resolved]
  - Tardive dyskinesia [Recovered/Resolved]
  - Dystonia [Recovered/Resolved]
  - Hypersensitivity [Recovered/Resolved]
